FAERS Safety Report 4619136-5 (Version None)
Quarter: 2005Q2

REPORT INFORMATION
  Report Type: 
  Country: None (occurrence: None)
  Receive Date: 20050321
  Receipt Date: 20050118
  Transmission Date: 20051028
  Serious: Yes (Other)
  Sender: FDA-Public Use
  Company Number: 2005-01-1425

PATIENT
  Age: 47 Year
  Sex: Male
  Weight: 113.3993 kg

DRUGS (2)
  1. PEG-INTRON [Suspect]
     Dosage: 172 MCG SUBCUTANEOUS
     Route: 058
     Dates: start: 20040924, end: 20050111
  2. REBETOL [Suspect]
     Dosage: 1400 MG QD ORAL
     Route: 048
     Dates: start: 20040924, end: 20050111

REACTIONS (2)
  - AGGRESSION [None]
  - HOMICIDAL IDEATION [None]
